FAERS Safety Report 7295553-2 (Version None)
Quarter: 2011Q1

REPORT INFORMATION
  Report Type: 
  Country: None (occurrence: None)
  Receive Date: 20110216
  Receipt Date: 20110207
  Transmission Date: 20110831
  Serious: Yes (Other)
  Sender: FDA-Public Use
  Company Number: US-JNJFOC-20110202430

PATIENT
  Sex: Female
  Weight: 67.59 kg

DRUGS (5)
  1. HUMIRA [Suspect]
     Indication: CROHN'S DISEASE
     Dosage: 40 MG/0.8 ML
     Route: 065
  2. LORAZEPAM [Concomitant]
     Route: 065
  3. TYLOX (OXYCODONE AND ACETAMINOPHEN) [Concomitant]
     Route: 065
  4. REMICADE [Suspect]
     Indication: CROHN'S DISEASE
     Route: 042
  5. ZOLPIDEM TARTRATE [Concomitant]
     Route: 065

REACTIONS (2)
  - TRIGGER FINGER [None]
  - CARPAL TUNNEL SYNDROME [None]
